FAERS Safety Report 4325479-5 (Version None)
Quarter: 2004Q1

REPORT INFORMATION
  Report Type: 
  Country: None (occurrence: None)
  Receive Date: 20040326
  Receipt Date: 20040326
  Transmission Date: 20041129
  Serious: Yes (Other)
  Sender: FDA-Public Use
  Company Number: None

PATIENT
  Age: 4 Year
  Sex: Male
  Weight: 19.5 kg

DRUGS (5)
  1. PEG-L-ASPARAGINASE 2500 IU/M2 [Suspect]
     Indication: ACUTE LYMPHOCYTIC LEUKAEMIA
     Dosage: 1925 IU CUTANEOUS
     Route: 003
     Dates: start: 20040102, end: 20040102
  2. DEXAMETHASONE-DEX [Concomitant]
  3. VINCRISTINE [Concomitant]
  4. DOXORUBICIN-DOXO- [Concomitant]
  5. METHOTREXATE- IT MTX-- [Concomitant]

REACTIONS (1)
  - UNEVALUABLE EVENT [None]
